FAERS Safety Report 25504256 (Version 3)
Quarter: 2025Q4

REPORT INFORMATION
  Report Type: Spontaneous
  Country: EU (occurrence: EU)
  Receive Date: 20250702
  Receipt Date: 20251029
  Transmission Date: 20260117
  Serious: Yes (Other)
  Sender: AUROBINDO
  Company Number: EU-JNJFOC-20241116678

PATIENT
  Age: 48 Year
  Sex: Female
  Weight: 51 kg

DRUGS (9)
  1. CARBOPLATIN [Suspect]
     Active Substance: CARBOPLATIN
     Indication: Non-small cell lung cancer
     Dosage: UNK
     Route: 065
  2. RYBREVANT [Suspect]
     Active Substance: AMIVANTAMAB-VMJW
     Indication: Non-small cell lung cancer metastatic
     Dosage: 1750 MILLIGRAM (MAINTENANCE  DOSE)
     Route: 065
     Dates: start: 20241010
  3. RYBREVANT [Suspect]
     Active Substance: AMIVANTAMAB-VMJW
     Dosage: 1400 MILLIGRAM LAST DOSE ON 25-MAR-2025
     Route: 065
     Dates: start: 20250325, end: 20250325
  4. RYBREVANT [Suspect]
     Active Substance: AMIVANTAMAB-VMJW
     Dosage: 1750 MILLIGRAM (MAINTENANCE  DOSE)
     Route: 065
  5. RYBREVANT [Suspect]
     Active Substance: AMIVANTAMAB-VMJW
     Dosage: 1400 MILLIGRAM (INFUSION NO 05)
     Route: 065
     Dates: start: 20241120
  6. RYBREVANT [Suspect]
     Active Substance: AMIVANTAMAB-VMJW
     Dosage: 1750 MILLIGRAM (INFUSION NO 05)
     Route: 065
     Dates: start: 20241120
  7. RYBREVANT [Suspect]
     Active Substance: AMIVANTAMAB-VMJW
     Dosage: 1750 MILLIGRAM (INFUSION NO 07)
     Route: 065
     Dates: start: 20241230
  8. OSIMERTINIB [Suspect]
     Active Substance: OSIMERTINIB
     Indication: Product used for unknown indication
     Dosage: UNK
     Route: 065
  9. ALIMTA [Suspect]
     Active Substance: PEMETREXED DISODIUM
     Indication: Non-small cell lung cancer metastatic
     Dosage: UNK
     Route: 065

REACTIONS (4)
  - Non-small cell lung cancer [Unknown]
  - Asthenia [Unknown]
  - Nausea [Unknown]
  - Headache [Unknown]
